FAERS Safety Report 8622002-1 (Version None)
Quarter: 2012Q3

REPORT INFORMATION
  Report Type: 
  Country: None (occurrence: None)
  Receive Date: 20120823
  Receipt Date: 20120823
  Transmission Date: 20120928
  Serious: Yes (Other)
  Sender: FDA-Public Use
  Company Number: None

PATIENT
  Age: 60 Year
  Sex: Male
  Weight: 63.5036 kg

DRUGS (1)
  1. TAMSULOSIN HCL [Suspect]
     Indication: PROSTATOMEGALY
     Dosage: .4 MG, DAILY, PO
     Route: 048
     Dates: start: 20120712, end: 20120723

REACTIONS (4)
  - DIZZINESS [None]
  - ANXIETY [None]
  - PERSONALITY DISORDER [None]
  - INSOMNIA [None]
